FAERS Safety Report 20025850 (Version 1)
Quarter: 2021Q4

REPORT INFORMATION
  Report Type: Spontaneous
  Country: CN (occurrence: None)
  Receive Date: 20211102
  Receipt Date: 20211102
  Transmission Date: 20220303
  Serious: Yes (Other)
  Sender: FDA-Public Use
  Company Number: CN-ROCHE-2945944

PATIENT
  Sex: Female

DRUGS (18)
  1. MABTHERA [Suspect]
     Active Substance: RITUXIMAB
     Indication: Diffuse large B-cell lymphoma
     Dosage: R-DA-EPOCH
     Route: 065
     Dates: start: 20210519, end: 20210614
  2. MABTHERA [Suspect]
     Active Substance: RITUXIMAB
     Dosage: R-DA-EPOCH PLUS LENALIDOMIDE
     Route: 065
     Dates: start: 20210706, end: 20210802
  3. MABTHERA [Suspect]
     Active Substance: RITUXIMAB
     Dosage: R-DHAP PLUS PARP INHIBITOR
     Route: 065
     Dates: start: 20210819
  4. ETOPOSIDE [Concomitant]
     Active Substance: ETOPOSIDE
     Indication: Diffuse large B-cell lymphoma
     Dosage: R-DA-EPOCH
     Dates: start: 20210519, end: 20210614
  5. ETOPOSIDE [Concomitant]
     Active Substance: ETOPOSIDE
     Dosage: R-DA-EPOCH PLUS LENALIDOMIDE
     Dates: start: 20210706, end: 20210802
  6. PREDNISONE [Concomitant]
     Active Substance: PREDNISONE
     Indication: Diffuse large B-cell lymphoma
     Dosage: R-DA-EPOCH
     Dates: start: 20210519, end: 20210614
  7. PREDNISONE [Concomitant]
     Active Substance: PREDNISONE
     Dosage: R-DA-EPOCH PLUS LENALIDOMIDE
     Dates: start: 20210706, end: 20210802
  8. VINCRISTINE [Concomitant]
     Active Substance: VINCRISTINE
     Indication: Diffuse large B-cell lymphoma
     Dosage: R-DA-EPOCH
     Dates: start: 20210519, end: 20210614
  9. VINCRISTINE [Concomitant]
     Active Substance: VINCRISTINE
     Dosage: R-DA-EPOCH PLUS LENALIDOMIDE
     Dates: start: 20210706, end: 20210802
  10. CYCLOPHOSPHAMIDE [Concomitant]
     Active Substance: CYCLOPHOSPHAMIDE
     Indication: Diffuse large B-cell lymphoma
     Dosage: R-DA-EPOCH
     Dates: start: 20210519, end: 20210614
  11. CYCLOPHOSPHAMIDE [Concomitant]
     Active Substance: CYCLOPHOSPHAMIDE
     Dosage: R-DA-EPOCH PLUS LENALIDOMIDE
     Dates: start: 20210706, end: 20210802
  12. DOXORUBICIN [Concomitant]
     Active Substance: DOXORUBICIN
     Indication: Diffuse large B-cell lymphoma
     Dosage: R-DA-EPOCH
     Dates: start: 20210519, end: 20210614
  13. DOXORUBICIN [Concomitant]
     Active Substance: DOXORUBICIN
     Dosage: R-DA-EPOCH PLUS LENALIDOMIDE
     Dates: start: 20210706, end: 20210802
  14. LENALIDOMIDE [Concomitant]
     Active Substance: LENALIDOMIDE
     Indication: Diffuse large B-cell lymphoma
     Dosage: R-DA-EPOCH PLUS LENALIDOMIDE
     Dates: start: 20210706, end: 20210802
  15. FLUZOPARIB [Concomitant]
     Active Substance: FLUZOPARIB
     Indication: Diffuse large B-cell lymphoma
     Dosage: R-DHAP PLUS PARP INHIBITOR
     Dates: start: 20210819, end: 20210827
  16. CISPLATIN [Concomitant]
     Active Substance: CISPLATIN
     Indication: Diffuse large B-cell lymphoma
     Dosage: R-DHAP PLUS PARP INHIBITOR
     Dates: start: 20210819, end: 20210827
  17. CYTARABINE [Concomitant]
     Active Substance: CYTARABINE
     Indication: Diffuse large B-cell lymphoma
     Dosage: R-DHAP PLUS PARP INHIBITOR
     Dates: start: 20210819, end: 20210827
  18. DEXAMETHASONE [Concomitant]
     Active Substance: DEXAMETHASONE
     Indication: Diffuse large B-cell lymphoma
     Dosage: R-DHAP PLUS PARP INHIBITOR
     Dates: start: 20210819, end: 20210827

REACTIONS (3)
  - Myelosuppression [Unknown]
  - Pyrexia [Unknown]
  - Drug ineffective [Unknown]
